FAERS Safety Report 21964360 (Version 1)
Quarter: 2023Q1

REPORT INFORMATION
  Report Type: Spontaneous
  Country: US (occurrence: US)
  Receive Date: 20230207
  Receipt Date: 20230207
  Transmission Date: 20230417
  Serious: Yes (Life-Threatening, Other)
  Sender: FDA-Public Use
  Company Number: US-PFIZER INC-PV202300020900

PATIENT
  Age: 6 Decade
  Sex: Male

DRUGS (16)
  1. AZITHROMYCIN [Suspect]
     Active Substance: AZITHROMYCIN
     Indication: Balamuthia infection
     Dosage: 500 MG, 1X/DAY
     Route: 048
  2. AZITHROMYCIN [Suspect]
     Active Substance: AZITHROMYCIN
     Indication: Encephalitis
  3. FLUCONAZOLE [Suspect]
     Active Substance: FLUCONAZOLE
     Indication: Balamuthia infection
     Dosage: 1000 MG [12 MG/KG], 1X/DAY
     Route: 048
  4. FLUCONAZOLE [Suspect]
     Active Substance: FLUCONAZOLE
     Indication: Encephalitis
  5. SULFADIAZINE [Suspect]
     Active Substance: SULFADIAZINE
     Indication: Balamuthia infection
     Dosage: 1500 MG, 4X/DAY
     Route: 048
  6. SULFADIAZINE [Suspect]
     Active Substance: SULFADIAZINE
     Indication: Encephalitis
  7. FLUCYTOSINE [Suspect]
     Active Substance: FLUCYTOSINE
     Indication: Encephalitis
     Dosage: 3000 MG, 4X/DAY, [37.5 MG/KG]
  8. FLUCYTOSINE [Suspect]
     Active Substance: FLUCYTOSINE
     Indication: Balamuthia infection
  9. PENTAMIDINE [Suspect]
     Active Substance: PENTAMIDINE
     Indication: Encephalitis
     Dosage: 330 MG, 1X/DAY, [4 MG/KG]
     Route: 042
  10. PENTAMIDINE [Suspect]
     Active Substance: PENTAMIDINE
     Indication: Balamuthia infection
  11. MILTEFOSINE [Suspect]
     Active Substance: MILTEFOSINE
     Indication: Encephalitis
     Dosage: 50 MG, 3X/DAY
     Route: 048
  12. MILTEFOSINE [Suspect]
     Active Substance: MILTEFOSINE
     Indication: Balamuthia infection
  13. ALBENDAZOLE [Suspect]
     Active Substance: ALBENDAZOLE
     Indication: Encephalitis
     Dosage: 400 MG, 1X/DAY
     Route: 048
  14. ALBENDAZOLE [Suspect]
     Active Substance: ALBENDAZOLE
     Indication: Balamuthia infection
  15. NITROXOLINE [Concomitant]
     Active Substance: NITROXOLINE
     Indication: Balamuthia infection
     Dosage: 250 MG ORALLY 3X/D
  16. NITROXOLINE [Concomitant]
     Active Substance: NITROXOLINE
     Indication: Encephalitis

REACTIONS (3)
  - Off label use [Unknown]
  - Drug ineffective for unapproved indication [Unknown]
  - Toxicity to various agents [Unknown]
